FAERS Safety Report 8005268 (Version 3)
Quarter: 2013Q2

REPORT INFORMATION
  Report Type: Spontaneous
  Country: US (occurrence: US)
  Receive Date: 20110623
  Receipt Date: 20130624
  Transmission Date: 20140414
  Serious: Yes (Disabling)
  Sender: FDA-Public Use
  Company Number: US-MUTUAL PHARMACEUTICAL COMPANY, INC.-MTCR20110158

PATIENT
  Sex: Female

DRUGS (2)
  1. METOCLOPRAMIDE [Suspect]
     Route: 048
     Dates: start: 200504, end: 200907
  2. REGLAN [Suspect]
     Route: 048
     Dates: start: 200504, end: 200907

REACTIONS (2)
  - Tardive dyskinesia [None]
  - Essential tremor [None]
